FAERS Safety Report 18569640 (Version 1)
Quarter: 2020Q4

REPORT INFORMATION
  Report Type: Spontaneous
  Country: US (occurrence: US)
  Receive Date: 20201202
  Receipt Date: 20201202
  Transmission Date: 20210114
  Serious: No
  Sender: FDA-Public Use
  Company Number: None

PATIENT
  Age: 68 Year
  Sex: Male

DRUGS (8)
  1. CETIRIZINE TAB 10MG [Concomitant]
     Dates: start: 20201129
  2. AMOXICILLIN CAP 500MG [Concomitant]
     Dates: start: 20201103
  3. OXYBUTYNIN TAB 10MG ER [Concomitant]
     Dates: start: 20200731
  4. TALTZ [Suspect]
     Active Substance: IXEKIZUMAB
     Indication: PSORIASIS
     Dosage: ?          OTHER FREQUENCY:MONTHLY;?
     Route: 058
     Dates: start: 20200113
  5. FLUTICASONE. [Concomitant]
     Active Substance: FLUTICASONE
     Dates: start: 20200826
  6. LISINOPRIL TAB 20MG [Concomitant]
     Active Substance: LISINOPRIL
     Dates: start: 20200629
  7. OXYCOD/APAP TAB 5-325MG [Concomitant]
     Dates: start: 20201021
  8. ONDANSETRON TAB 4MG ODT [Concomitant]
     Dates: start: 20200717

REACTIONS (2)
  - Therapy interrupted [None]
  - Surgery [None]

NARRATIVE: CASE EVENT DATE: 20201001
